FAERS Safety Report 5546140-5 (Version None)
Quarter: 2007Q4

REPORT INFORMATION
  Report Type: 
  Country: None (occurrence: None)
  Receive Date: 20071123
  Receipt Date: 20070403
  Transmission Date: 20080405
  Serious: Yes (Hospitalization, Other)
  Sender: FDA-Public Use
  Company Number: 35701

PATIENT
  Age: 57 Year
  Sex: Male

DRUGS (1)
  1. LEUCOVORIN CALCIUM [Suspect]
     Indication: METASTATIC GASTRIC CANCER
     Dosage: 200MG/SQ METER
     Dates: start: 20061018, end: 20061117

REACTIONS (1)
  - DIARRHOEA [None]
